FAERS Safety Report 12596319 (Version 2)
Quarter: 2016Q3

REPORT INFORMATION
  Report Type: Report from Study
  Country: US (occurrence: US)
  Receive Date: 20160726
  Receipt Date: 20160829
  Transmission Date: 20161109
  Serious: Yes (Hospitalization)
  Sender: FDA-Public Use
  Company Number: US-AMGEN-USASL2016092535

PATIENT
  Age: 60 Year
  Sex: Male

DRUGS (1)
  1. KYPROLIS [Suspect]
     Active Substance: CARFILZOMIB
     Indication: PLASMA CELL MYELOMA
     Dosage: UNK UNK, 2 TIMES/WK , TWICE WEEKLY ON THURSDAYS AND FRIDAYS (ON 3 WEEKS THEN OFF 1 WEEK)
     Route: 065
     Dates: start: 201604

REACTIONS (4)
  - Bone disorder [Unknown]
  - Musculoskeletal stiffness [Recovered/Resolved]
  - Spinal disorder [Unknown]
  - Disease progression [Unknown]

NARRATIVE: CASE EVENT DATE: 2016
